FAERS Safety Report 12975312 (Version 1)
Quarter: 2016Q4

REPORT INFORMATION
  Report Type: Spontaneous
  Country: GB (occurrence: GB)
  Receive Date: 20161125
  Receipt Date: 20161125
  Transmission Date: 20170207
  Serious: Yes (Hospitalization, Other)
  Sender: FDA-Public Use
  Company Number: GB-AMGEN-GBRSP2016129620

PATIENT
  Age: 65 Year
  Sex: Male
  Weight: 79.7 kg

DRUGS (8)
  1. VECTIBIX [Suspect]
     Active Substance: PANITUMUMAB
     Dosage: 360 MG, UNK
     Route: 042
     Dates: start: 20160224, end: 20161012
  2. VECTIBIX [Suspect]
     Active Substance: PANITUMUMAB
     Dosage: UNK, WITH A DOSE REDUCTION OF 25 %
     Route: 042
     Dates: start: 201602, end: 20160224
  3. DOXYCYCLINE. [Concomitant]
     Active Substance: DOXYCYCLINE
     Indication: RASH
     Dosage: UNK
     Dates: start: 20160102
  4. VECTIBIX [Suspect]
     Active Substance: PANITUMUMAB
     Dosage: 360 MG, UNK
     Route: 042
     Dates: start: 201601, end: 201602
  5. FUCIDIN [Suspect]
     Active Substance: FUSIDIC ACID
     Indication: PRODUCT USED FOR UNKNOWN INDICATION
     Dosage: UNK
     Route: 065
  6. VECTIBIX [Suspect]
     Active Substance: PANITUMUMAB
     Indication: PRODUCT USED FOR UNKNOWN INDICATION
     Dosage: 360 MG, UNK
     Route: 042
     Dates: start: 20151221, end: 20160104
  7. VECTIBIX [Suspect]
     Active Substance: PANITUMUMAB
     Dosage: 360 MG, UNK
     Route: 042
     Dates: start: 20161109
  8. PIRITON [Concomitant]
     Active Substance: CHLORPHENIRAMINE MALEATE
     Dosage: UNK
     Dates: start: 20160102

REACTIONS (9)
  - Neuropathy peripheral [Unknown]
  - Exfoliative rash [Unknown]
  - Lip swelling [Unknown]
  - Rash [Unknown]
  - Swelling face [Unknown]
  - Paronychia [Unknown]
  - Peripheral swelling [Unknown]
  - Sepsis [Unknown]
  - Erythema [Unknown]

NARRATIVE: CASE EVENT DATE: 20160102
